FAERS Safety Report 17313468 (Version 1)
Quarter: 2020Q1

REPORT INFORMATION
  Report Type: Spontaneous
  Country: US (occurrence: US)
  Receive Date: 20200107
  Receipt Date: 20200107
  Transmission Date: 20200409
  Serious: Yes (Hospitalization)
  Sender: FDA-Public Use
  Company Number: None

PATIENT
  Sex: Male

DRUGS (10)
  1. OPSUMIT [Concomitant]
     Active Substance: MACITENTAN
  2. ONDANSETRON [Concomitant]
     Active Substance: ONDANSETRON
  3. POT CHLORIDE [Concomitant]
     Active Substance: POTASSIUM CHLORIDE
  4. SPIRONOLACT [Concomitant]
     Active Substance: SPIRONOLACTONE
  5. METOLAZONE. [Concomitant]
     Active Substance: METOLAZONE
  6. TADALAFIL 20MG TAB [Suspect]
     Active Substance: TADALAFIL
     Indication: PULMONARY ARTERIAL HYPERTENSION
     Dosage: ?          OTHER DOSE:2 TABS;?
     Route: 048
     Dates: start: 20190724
  7. METOPROL SUC [Concomitant]
  8. TORSEMIDE. [Concomitant]
     Active Substance: TORSEMIDE
  9. BUT/APAP/CAF [Concomitant]
  10. GABAPENTIN. [Concomitant]
     Active Substance: GABAPENTIN

REACTIONS (1)
  - Hospitalisation [None]
